FAERS Safety Report 8631474 (Version 3)
Quarter: 2012Q4

REPORT INFORMATION
  Report Type: 
  Country: RU (occurrence: RU)
  Receive Date: 20120622
  Receipt Date: 20121121
  Transmission Date: 20130627
  Serious: Yes (Other)
  Sender: FDA-Public Use
  Company Number: RU-ALLERGAN-1208384US

PATIENT
  Age: 58 Year
  Sex: Female
  Weight: 67 kg

DRUGS (3)
  1. ALPHAGAN� P [Suspect]
     Indication: OPEN-ANGLE GLAUCOMA
     Dosage: 1 Gtt, single
     Route: 047
     Dates: start: 20120606, end: 20120606
  2. ENALAPRIL [Concomitant]
     Indication: HYPERTENSION
     Dosage: 5 mg, unknown
     Route: 065
  3. METOPROLOL [Concomitant]
     Indication: HYPERTENSION
     Dosage: 50 mg, unknown
     Route: 065

REACTIONS (3)
  - Hypertensive crisis [Recovered/Resolved]
  - Tachycardia [Recovered/Resolved]
  - Eye irritation [Recovered/Resolved]
